FAERS Safety Report 16018923 (Version 2)
Quarter: 2019Q4

REPORT INFORMATION
  Report Type: Report from Study
  Country: US (occurrence: US)
  Receive Date: 20190228
  Receipt Date: 20191126
  Transmission Date: 20200122
  Serious: Yes (Hospitalization, Other)
  Sender: FDA-Public Use
  Company Number: PHEH2019US008666

PATIENT
  Sex: Male

DRUGS (2)
  1. ENTRESTO [Suspect]
     Active Substance: SACUBITRIL\VALSARTAN
     Indication: CARDIAC FAILURE CONGESTIVE
  2. ENTRESTO [Suspect]
     Active Substance: SACUBITRIL\VALSARTAN
     Indication: CARDIAC FAILURE
     Route: 048

REACTIONS (8)
  - Pneumonia [Unknown]
  - Gait disturbance [Unknown]
  - Anaemia [Unknown]
  - Pulmonary oedema [Unknown]
  - Blood sodium decreased [Unknown]
  - Hepatic cirrhosis [Unknown]
  - Back pain [Unknown]
  - Hypotension [Unknown]
